FAERS Safety Report 4274860-1 (Version None)
Quarter: 2004Q1

REPORT INFORMATION
  Report Type: 
  Country: None (occurrence: None)
  Receive Date: 20040120
  Receipt Date: 20030916
  Transmission Date: 20041129
  Serious: Yes (Death, Hospitalization)
  Sender: FDA-Public Use
  Company Number: US-BRISTOL-MYERS SQUIBB COMPANY-12383733

PATIENT
  Age: 55 Year
  Sex: Female
  Weight: 59 kg

DRUGS (13)
  1. REYATAZ [Interacting]
     Indication: HIV TEST POSITIVE
     Route: 048
     Dates: start: 20030821, end: 20030914
  2. VIDEX EC [Suspect]
  3. VERAPAMIL [Interacting]
  4. FUZEON [Suspect]
  5. PENTAMIDINE ISETHIONATE [Suspect]
     Dosage: ADMINISTERED WHILE IN THE ICU
     Dates: start: 20030901
  6. DIFLUCAN [Concomitant]
  7. MEPRON [Concomitant]
  8. NORVASC [Concomitant]
  9. AVANDIA [Concomitant]
  10. SOLU-MEDROL [Concomitant]
  11. VALTREX [Concomitant]
  12. ANTIVERT [Concomitant]
  13. VALCYTE [Concomitant]

REACTIONS (4)
  - DEATH [None]
  - DRUG INTERACTION [None]
  - ELECTROCARDIOGRAM QT PROLONGED [None]
  - PNEUMOCYSTIS CARINII PNEUMONIA [None]
